FAERS Safety Report 13862027 (Version 3)
Quarter: 2017Q3

REPORT INFORMATION
  Report Type: Report from Study
  Country: CN (occurrence: CN)
  Receive Date: 20170812
  Receipt Date: 20170824
  Transmission Date: 20171127
  Serious: Yes (Other)
  Sender: FDA-Public Use
  Company Number: CN-ROCHE-1882498

PATIENT
  Age: 44 Year
  Sex: Female
  Weight: 48 kg

DRUGS (1)
  1. AVASTIN [Suspect]
     Active Substance: BEVACIZUMAB
     Indication: RECTAL CANCER
     Dosage: 200MG/300MG ALTERNATE USE
     Route: 041
     Dates: start: 20160805, end: 20170705

REACTIONS (7)
  - White blood cell count decreased [Unknown]
  - Coagulopathy [Unknown]
  - Gingival bleeding [Recovered/Resolved]
  - Platelet count decreased [Unknown]
  - Oligomenorrhoea [Recovered/Resolved]
  - Discomfort [Unknown]
  - Menstrual disorder [Unknown]

NARRATIVE: CASE EVENT DATE: 201706
